FAERS Safety Report 5134504-3 (Version None)
Quarter: 2006Q4

REPORT INFORMATION
  Report Type: 
  Country: None (occurrence: None)
  Receive Date: 20061025
  Receipt Date: 20061013
  Transmission Date: 20070319
  Serious: Yes (Hospitalization)
  Sender: FDA-Public Use
  Company Number: US-JNJFOC-20061003710

PATIENT
  Age: 25 Year
  Sex: Female

DRUGS (6)
  1. DURAGESIC-100 [Suspect]
     Route: 062
  2. DURAGESIC-100 [Suspect]
     Indication: PAIN
     Route: 062
  3. TIZANIDINE HCL [Concomitant]
     Indication: NERVE INJURY
     Route: 048
  4. LORTAB [Concomitant]
     Indication: PAIN
     Route: 048
  5. ZOLOXT [Concomitant]
     Indication: DEPRESSION
     Route: 048
  6. DALMANE [Concomitant]
     Indication: INSOMNIA
     Route: 048

REACTIONS (2)
  - CEREBROVASCULAR ACCIDENT [None]
  - DRUG EXPOSURE DURING PREGNANCY [None]
